FAERS Safety Report 8223290-6 (Version None)
Quarter: 2012Q1

REPORT INFORMATION
  Report Type: 
  Country: None (occurrence: None)
  Receive Date: 20120321
  Receipt Date: 20120306
  Transmission Date: 20120608
  Serious: Yes (Other)
  Sender: FDA-Public Use
  Company Number: US-ROCHE-1046632

PATIENT
  Sex: Female
  Weight: 64.468 kg

DRUGS (6)
  1. DILAUDID [Concomitant]
     Indication: PAIN
     Route: 048
  2. ALOXI [Concomitant]
     Indication: NAUSEA
     Route: 042
  3. NEULASTA [Concomitant]
     Indication: PROPHYLAXIS
     Route: 058
     Dates: start: 20111001
  4. ULTRAM [Concomitant]
     Indication: PAIN
     Route: 048
  5. ALOXI [Concomitant]
     Indication: VOMITING
  6. HERCEPTIN [Suspect]
     Indication: BREAST CANCER METASTATIC
     Route: 042
     Dates: start: 20111001

REACTIONS (2)
  - VISUAL ACUITY REDUCED [None]
  - PAIN [None]
